FAERS Safety Report 8364592-2 (Version None)
Quarter: 2012Q2

REPORT INFORMATION
  Report Type: 
  Country: None (occurrence: None)
  Receive Date: 20120516
  Receipt Date: 20120510
  Transmission Date: 20120825
  Serious: Yes (Hospitalization, Other)
  Sender: FDA-Public Use
  Company Number: CA-ROCHE-1067721

PATIENT
  Age: 78 Year
  Sex: Female
  Weight: 75 kg

DRUGS (7)
  1. LIPITOR [Concomitant]
     Route: 048
  2. XELODA [Suspect]
     Indication: PRODUCT USED FOR UNKNOWN INDICATION
     Route: 048
  3. FRAGMIN [Concomitant]
     Route: 058
  4. OMEPRAZOLE [Concomitant]
     Route: 048
  5. PERINDOPRIL ERBUMINE [Concomitant]
     Route: 048
  6. DIPHENOXYLATE HYDROCHLORIDE/ATROPINE SULFATE [Concomitant]
     Route: 048
  7. SERTRALINE HYDROCHLORIDE [Concomitant]
     Route: 048

REACTIONS (8)
  - BLOOD CHLORIDE INCREASED [None]
  - PALMAR-PLANTAR ERYTHRODYSAESTHESIA SYNDROME [None]
  - DIARRHOEA [None]
  - DEHYDRATION [None]
  - BLOOD MAGNESIUM DECREASED [None]
  - BLOOD POTASSIUM DECREASED [None]
  - BODY TEMPERATURE INCREASED [None]
  - PYREXIA [None]
